FAERS Safety Report 8057817 (Version 12)
Quarter: 2013Q3

REPORT INFORMATION
  Report Type: Spontaneous
  Country: US (occurrence: US)
  Receive Date: 20110728
  Receipt Date: 20130910
  Transmission Date: 20140515
  Serious: Yes (Hospitalization, Other)
  Sender: FDA-Public Use
  Company Number: US-BIOGENIDEC-2011BI025529

PATIENT
  Age: 52 Year
  Sex: Female
  Weight: 82 kg

DRUGS (5)
  1. TYSABRI [Suspect]
     Indication: MULTIPLE SCLEROSIS
     Route: 042
     Dates: start: 20080408, end: 20110606
  2. MIDRIN [Concomitant]
     Indication: HEADACHE
  3. ANTIVERT [Concomitant]
     Indication: DIZZINESS
  4. LYRICA [Concomitant]
     Indication: NEURALGIA
  5. AMANTADINE [Concomitant]
     Indication: FATIGUE

REACTIONS (5)
  - Progressive multifocal leukoencephalopathy [Not Recovered/Not Resolved]
  - Relapsing-remitting multiple sclerosis [Unknown]
  - Migraine [Unknown]
  - Urinary tract infection [Recovered/Resolved]
  - Immune reconstitution inflammatory syndrome [Unknown]
